FAERS Safety Report 11850428 (Version 1)
Quarter: 2015Q4

REPORT INFORMATION
  Report Type: Spontaneous
  Country: US (occurrence: US)
  Receive Date: 20151218
  Receipt Date: 20151218
  Transmission Date: 20160305
  Serious: No
  Sender: FDA-Public Use
  Company Number: US-JNJFOC-20151115834

PATIENT
  Age: 52 Year
  Sex: Female
  Weight: 52.62 kg

DRUGS (1)
  1. SUDAFED [Suspect]
     Active Substance: PSEUDOEPHEDRINE HYDROCHLORIDE
     Indication: SINUS DISORDER
     Route: 048

REACTIONS (1)
  - Drug hypersensitivity [Recovered/Resolved]
